FAERS Safety Report 4594235-5 (Version None)
Quarter: 2005Q1

REPORT INFORMATION
  Report Type: 
  Country: None (occurrence: None)
  Receive Date: 20050301
  Receipt Date: 20040809
  Transmission Date: 20050727
  Serious: No
  Sender: FDA-Public Use
  Company Number: US-GLAXOSMITHKLINE-A0521549A

PATIENT
  Age: 78 Year
  Sex: Male

DRUGS (5)
  1. VALTREX [Suspect]
     Indication: HERPES ZOSTER
     Dosage: 1TAB THREE TIMES PER DAY
     Route: 048
     Dates: start: 20040729, end: 20040730
  2. ALLEGRA [Concomitant]
  3. VITAMINS [Concomitant]
  4. TYLENOL [Concomitant]
  5. MELATONIN [Concomitant]

REACTIONS (4)
  - COUGH [None]
  - DYSPHAGIA [None]
  - FOREIGN BODY TRAUMA [None]
  - PHARYNGOLARYNGEAL PAIN [None]
